FAERS Safety Report 6964994-2 (Version None)
Quarter: 2010Q3

REPORT INFORMATION
  Report Type: 
  Country: None (occurrence: None)
  Receive Date: 20100903
  Receipt Date: 20100827
  Transmission Date: 20110219
  Serious: Yes (Hospitalization)
  Sender: FDA-Public Use
  Company Number: DE-SANOFI-AVENTIS-2010SA052218

PATIENT
  Age: 63 Year
  Sex: Male
  Weight: 72 kg

DRUGS (6)
  1. ARAVA [Suspect]
     Indication: RHEUMATOID ARTHRITIS
     Route: 048
     Dates: start: 20080801, end: 20090602
  2. ARAVA [Suspect]
     Route: 048
     Dates: start: 20090602
  3. BLINDED THERAPY [Suspect]
     Indication: RHEUMATOID ARTHRITIS
     Route: 065
     Dates: start: 20090717
  4. HYALURONATE SODIUM [Concomitant]
     Route: 047
     Dates: start: 20091218, end: 20100630
  5. ALLOPURINOL [Concomitant]
     Dates: start: 20090520, end: 20100630
  6. RAMIPRIL [Concomitant]
     Dates: start: 20091221

REACTIONS (4)
  - ASCITES [None]
  - CARDIAC FAILURE [None]
  - HEPATIC CIRRHOSIS [None]
  - PERICARDIAL EFFUSION [None]
